FAERS Safety Report 23259949 (Version 1)
Quarter: 2023Q4

REPORT INFORMATION
  Report Type: Spontaneous
  Country: CZ (occurrence: CZ)
  Receive Date: 20231204
  Receipt Date: 20231204
  Transmission Date: 20240110
  Serious: Yes (Death, Hospitalization, Other)
  Sender: FDA-Public Use
  Company Number: CZ-GILEAD-2023-0653089

PATIENT
  Age: 75 Year
  Sex: Male

DRUGS (1)
  1. YESCARTA [Suspect]
     Active Substance: AXICABTAGENE CILOLEUCEL
     Indication: Product used for unknown indication
     Dosage: UNK,  (DAY 0)
     Route: 065

REACTIONS (11)
  - Cardiogenic shock [Fatal]
  - Cardiac dysfunction [Not Recovered/Not Resolved]
  - Pancytopenia [Unknown]
  - Multiple organ dysfunction syndrome [Not Recovered/Not Resolved]
  - Pulmonary oedema [Not Recovered/Not Resolved]
  - Thrombocytopenia [Unknown]
  - Neutropenia [Not Recovered/Not Resolved]
  - Cytokine release syndrome [Recovering/Resolving]
  - Pyrexia [Not Recovered/Not Resolved]
  - Arterial occlusive disease [Unknown]
  - Pyrexia [Unknown]
